FAERS Safety Report 4620051-1 (Version None)
Quarter: 2005Q1

REPORT INFORMATION
  Report Type: 
  Country: None (occurrence: None)
  Receive Date: 20050323
  Receipt Date: 20050323
  Transmission Date: 20050727
  Serious: Yes (Hospitalization, Disabling)
  Sender: FDA-Public Use
  Company Number: None

PATIENT
  Sex: Male
  Weight: 72.5755 kg

DRUGS (2)
  1. ZOMETA [Suspect]
     Indication: BONE NEOPLASM MALIGNANT
  2. ZOMETA [Suspect]
     Indication: OSTEOPOROSIS PROPHYLAXIS

REACTIONS (4)
  - IMPAIRED HEALING [None]
  - JAW DISORDER [None]
  - OSTEOMYELITIS [None]
  - PAIN [None]
